FAERS Safety Report 11930945 (Version 2)
Quarter: 2016Q1

REPORT INFORMATION
  Report Type: Spontaneous
  Country: NO (occurrence: NO)
  Receive Date: 20160120
  Receipt Date: 20160203
  Transmission Date: 20160526
  Serious: Yes (Disabling)
  Sender: FDA-Public Use
  Company Number: NO-BAXTER-2016BAX001275

PATIENT
  Sex: Male

DRUGS (5)
  1. LASIX [Concomitant]
     Active Substance: FUROSEMIDE
     Indication: HYPERTENSION
     Route: 065
     Dates: start: 2006
  2. SOLU-MEDROL [Suspect]
     Active Substance: METHYLPREDNISOLONE SODIUM SUCCINATE
     Indication: MESANGIOPROLIFERATIVE GLOMERULONEPHRITIS
     Route: 065
     Dates: start: 2006, end: 2006
  3. RENITEC [Concomitant]
     Active Substance: ENALAPRIL MALEATE
     Indication: HYPERTENSION
     Route: 065
     Dates: start: 2006
  4. ADALAT [Concomitant]
     Active Substance: NIFEDIPINE
     Indication: HYPERTENSION
     Route: 065
     Dates: start: 2006
  5. SENDOXAN 1000 MG PULVER TIL INJEKSJONSV?SKE, OPPL?SNING [Suspect]
     Active Substance: CYCLOPHOSPHAMIDE
     Indication: MESANGIOPROLIFERATIVE GLOMERULONEPHRITIS
     Dosage: CUMULATIVE DOSE TO FIRST REACTION: 4.5 GRAM
     Route: 065
     Dates: start: 2006

REACTIONS (3)
  - Impaired work ability [Recovered/Resolved with Sequelae]
  - Fatigue [Recovered/Resolved with Sequelae]
  - Listless [Recovered/Resolved with Sequelae]

NARRATIVE: CASE EVENT DATE: 2015
